FAERS Safety Report 9120521 (Version 2)
Quarter: 2013Q2

REPORT INFORMATION
  Report Type: Spontaneous
  Country: US (occurrence: US)
  Receive Date: 20130226
  Receipt Date: 20130404
  Transmission Date: 20140414
  Serious: No
  Sender: FDA-Public Use
  Company Number: US-009507513-1302USA012290

PATIENT
  Age: 85 Year
  Sex: Female
  Weight: 66.67 kg

DRUGS (3)
  1. MIRALAX [Suspect]
     Indication: BOWEL PREPARATION
     Dosage: 14 DF, ONCE
     Route: 048
     Dates: start: 201301, end: 20130112
  2. MIRALAX [Suspect]
     Indication: DIVERTICULITIS
     Dosage: 17 G, BID
     Route: 048
     Dates: start: 201301
  3. MIRALAX [Suspect]
     Indication: MEDICAL OBSERVATION

REACTIONS (7)
  - Faeces discoloured [Recovering/Resolving]
  - Flatulence [Recovered/Resolved]
  - Diarrhoea [Recovering/Resolving]
  - Overdose [Unknown]
  - Inappropriate schedule of drug administration [Unknown]
  - Off label use [Unknown]
  - Expired drug administered [Unknown]
